FAERS Safety Report 13752093 (Version 2)
Quarter: 2017Q3

REPORT INFORMATION
  Report Type: Spontaneous
  Country: FR (occurrence: FR)
  Receive Date: 20170713
  Receipt Date: 20170727
  Transmission Date: 20171127
  Serious: Yes (Other)
  Sender: FDA-Public Use
  Company Number: FR-TEVA-786266ROM

PATIENT
  Age: 67 Year
  Sex: Female

DRUGS (5)
  1. LETROZOLE. [Suspect]
     Active Substance: LETROZOLE
     Indication: HORMONE THERAPY
     Route: 065
  2. VITAMIN D [Concomitant]
     Active Substance: CHOLECALCIFEROL
     Route: 065
  3. LEVOTHYROXINE SODIUM. [Concomitant]
     Active Substance: LEVOTHYROXINE SODIUM
     Route: 065
  4. METFORMIN [Concomitant]
     Active Substance: METFORMIN HYDROCHLORIDE
     Route: 065
  5. SOLIFENACIN [Concomitant]
     Active Substance: SOLIFENACIN
     Route: 065

REACTIONS (1)
  - Organising pneumonia [Recovered/Resolved]
